FAERS Safety Report 23500707 (Version 1)
Quarter: 2024Q1

REPORT INFORMATION
  Report Type: Spontaneous
  Country: US (occurrence: US)
  Receive Date: 20240208
  Receipt Date: 20240208
  Transmission Date: 20240410
  Serious: Yes (Life-Threatening, Hospitalization, Other)
  Sender: FDA-Public Use
  Company Number: US-Zuellig Korea-ATNAHS20240200338

PATIENT
  Age: 68 Year
  Sex: Male

DRUGS (1)
  1. VALIUM [Suspect]
     Active Substance: DIAZEPAM
     Indication: Anxiety
     Dosage: FOR 40 YEARS FOR ANXIETY

REACTIONS (8)
  - Hip arthroplasty [Unknown]
  - Drug withdrawal syndrome [Unknown]
  - Feeling of despair [Unknown]
  - Toxicity to various agents [Unknown]
  - Drug dependence [Unknown]
  - Dysarthria [Unknown]
  - Anxiety [Unknown]
  - Product use issue [Unknown]
